FAERS Safety Report 11540758 (Version 1)
Quarter: 2015Q3

REPORT INFORMATION
  Report Type: Spontaneous
  Country: DE (occurrence: DE)
  Receive Date: 20150923
  Receipt Date: 20150923
  Transmission Date: 20151125
  Serious: Yes (Other)
  Sender: FDA-Public Use
  Company Number: DE-GLAXOSMITHKLINE-DE2015GSK132192

PATIENT
  Age: 73 Year
  Sex: Female

DRUGS (4)
  1. SANDIMMUN [Concomitant]
     Active Substance: CYCLOSPORINE
     Dosage: 75-100MG
  2. INSULIN [Concomitant]
     Active Substance: INSULIN NOS
  3. REVOLADE [Suspect]
     Active Substance: ELTROMBOPAG
     Indication: PRODUCT USED FOR UNKNOWN INDICATION
     Dosage: 50 MG, UNK
     Dates: start: 2015, end: 201509
  4. PREDNISON [Concomitant]
     Active Substance: PREDNISONE
     Dosage: 50 MG, UNK

REACTIONS (3)
  - Drug ineffective [Unknown]
  - Aplastic anaemia [Unknown]
  - Essential tremor [Unknown]

NARRATIVE: CASE EVENT DATE: 2015
